FAERS Safety Report 5688736-6 (Version None)
Quarter: 2008Q1

REPORT INFORMATION
  Report Type: 
  Country: None (occurrence: None)
  Receive Date: 20080331
  Receipt Date: 20080324
  Transmission Date: 20080703
  Serious: Yes (Hospitalization)
  Sender: FDA-Public Use
  Company Number: JP-MERCK-0803USA01815

PATIENT
  Age: 76 Year
  Sex: Male

DRUGS (5)
  1. COZAAR [Suspect]
     Indication: HYPERTENSION
     Route: 048
     Dates: start: 20070105, end: 20080309
  2. AMARYL [Suspect]
     Indication: DIABETES MELLITUS
     Route: 048
     Dates: start: 20070330, end: 20080309
  3. BASEN [Concomitant]
     Indication: DIABETES MELLITUS
     Route: 048
     Dates: start: 20060307, end: 20080309
  4. NITOROL-R [Concomitant]
     Indication: ANGINA PECTORIS
     Route: 048
     Dates: start: 20060307, end: 20080309
  5. SYMMETREL [Concomitant]
     Indication: CEREBRAL INFARCTION
     Route: 048
     Dates: end: 20080309

REACTIONS (4)
  - DECREASED APPETITE [None]
  - HYPOGLYCAEMIA [None]
  - PNEUMONIA [None]
  - VOMITING [None]
